FAERS Safety Report 4366628-2 (Version None)
Quarter: 2004Q2

REPORT INFORMATION
  Report Type: 
  Country: None (occurrence: None)
  Receive Date: 20040524
  Receipt Date: 20040506
  Transmission Date: 20050107
  Serious: Yes (Life-Threatening, Hospitalization)
  Sender: FDA-Public Use
  Company Number: DSA_24001_2004

PATIENT
  Age: 11 Year
  Sex: Male

DRUGS (3)
  1. ENALAPRIL MALEATE [Suspect]
     Indication: PROTEINURIA
     Dosage: 5 MG Q DAY PO
     Route: 048
     Dates: start: 20030701, end: 20031201
  2. ALFACALCIDOL [Concomitant]
  3. RANITIDINE [Concomitant]

REACTIONS (3)
  - NAUSEA [None]
  - TUBULOINTERSTITIAL NEPHRITIS [None]
  - VOMITING [None]
